FAERS Safety Report 8102599-0 (Version None)
Quarter: 2012Q1

REPORT INFORMATION
  Report Type: 
  Country: None (occurrence: None)
  Receive Date: 20120201
  Receipt Date: 20120120
  Transmission Date: 20120608
  Serious: Yes (Other)
  Sender: FDA-Public Use
  Company Number: US-UCBSA-023830

PATIENT
  Age: 18 Month
  Sex: Male
  Weight: 13.19 kg

DRUGS (5)
  1. KEPPRA [Suspect]
     Indication: EPILEPSY
     Route: 064
     Dates: end: 20081101
  2. KEPPRA [Suspect]
     Route: 064
  3. LAMOTRIGINE [Concomitant]
     Indication: EPILEPSY
     Dates: start: 20080610
  4. FOLIC ACID [Concomitant]
     Indication: VITAMIN SUPPLEMENTATION
     Route: 064
     Dates: start: 20071201
  5. VITAMIN AND MINERAL PRENATAL SUPPLEMENT W/ FOLIC ACID CAP [Concomitant]
     Indication: VITAMIN SUPPLEMENTATION
     Dosage: DF AS TABLET
     Route: 064
     Dates: start: 20071209

REACTIONS (2)
  - SPEECH DISORDER DEVELOPMENTAL [None]
  - FOETAL EXPOSURE DURING PREGNANCY [None]
